FAERS Safety Report 7784411-2 (Version None)
Quarter: 2011Q3

REPORT INFORMATION
  Report Type: 
  Country: None (occurrence: None)
  Receive Date: 20110928
  Receipt Date: 20110923
  Transmission Date: 20111222
  Serious: Yes (Other)
  Sender: FDA-Public Use
  Company Number: PHHY2011TR84638

PATIENT
  Age: 37 Year
  Sex: Female

DRUGS (2)
  1. LAMISIL [Suspect]
     Indication: TINEA PEDIS
     Dosage: 250 MG, QD
     Route: 048
     Dates: start: 20110716
  2. FOLIC ACID [Concomitant]

REACTIONS (2)
  - ALOPECIA [None]
  - MENORRHAGIA [None]
